FAERS Safety Report 4314534-1 (Version None)
Quarter: 2004Q1

REPORT INFORMATION
  Report Type: 
  Country: None (occurrence: None)
  Receive Date: 20040309
  Receipt Date: 20040224
  Transmission Date: 20041129
  Serious: Yes (Life-Threatening, Hospitalization)
  Sender: FDA-Public Use
  Company Number: A-CH2004-05242

PATIENT
  Age: 8 Year
  Sex: Female
  Weight: 21 kg

DRUGS (7)
  1. TRACLEER [Suspect]
     Indication: PULMONARY HYPERTENSION
     Dosage: SEE IMAGE
     Route: 048
     Dates: start: 20031203, end: 20030106
  2. TRACLEER [Suspect]
     Indication: PULMONARY HYPERTENSION
     Dosage: SEE IMAGE
     Route: 048
     Dates: start: 20040107, end: 20040209
  3. ALDACTONE [Concomitant]
  4. CAPTOPRIL [Concomitant]
  5. LASIX [Concomitant]
  6. PREVISCAN (FLUINDIONE) [Concomitant]
  7. SINTROM [Concomitant]

REACTIONS (4)
  - CONDITION AGGRAVATED [None]
  - GENERAL PHYSICAL HEALTH DETERIORATION [None]
  - INTRACARDIAC THROMBUS [None]
  - RIGHT VENTRICULAR FAILURE [None]
